FAERS Safety Report 18395832 (Version 1)
Quarter: 2020Q4

REPORT INFORMATION
  Report Type: Spontaneous
  Country: US (occurrence: US)
  Receive Date: 20201018
  Receipt Date: 20201018
  Transmission Date: 20210114
  Serious: Yes (Death, Hospitalization, Other)
  Sender: FDA-Public Use
  Company Number: US-GILEAD-2020-0499410

PATIENT
  Age: 80 Year
  Sex: Male
  Weight: 81.7 kg

DRUGS (21)
  1. LISINOPRIL. [Concomitant]
     Active Substance: LISINOPRIL
  2. ALBUTEROL [SALBUTAMOL] [Concomitant]
     Active Substance: ALBUTEROL
  3. CHLORHEXIDINE [Concomitant]
     Active Substance: CHLORHEXIDINE
  4. ENOXAPARIN [Concomitant]
     Active Substance: ENOXAPARIN
  5. MUPIROCIN. [Concomitant]
     Active Substance: MUPIROCIN
  6. ONDANSETRON [Concomitant]
     Active Substance: ONDANSETRON
  7. DEXAMETHASONE. [Concomitant]
     Active Substance: DEXAMETHASONE
  8. INSULIN DETEMIR [Concomitant]
     Active Substance: INSULIN DETEMIR
  9. BENZONATATE. [Concomitant]
     Active Substance: BENZONATATE
  10. CARVEDILOL. [Concomitant]
     Active Substance: CARVEDILOL
  11. LEVOTHYROXINE. [Concomitant]
     Active Substance: LEVOTHYROXINE
  12. LOPERAMIDE [Concomitant]
     Active Substance: LOPERAMIDE
  13. REMDESIVIR. [Suspect]
     Active Substance: REMDESIVIR
     Indication: COVID-19
     Dosage: 200 MG, ONCE
     Route: 042
     Dates: start: 20200920, end: 20200920
  14. ASPIRIN (E.C.) [Concomitant]
     Active Substance: ASPIRIN
  15. DEXTROMETHORPHAN-GUAIFENESIN [Concomitant]
     Active Substance: DEXTROMETHORPHAN\GUAIFENESIN
  16. INSULIN REGULAR [INSULIN BOVINE] [Concomitant]
     Active Substance: INSULIN BEEF
  17. REMDESIVIR. [Suspect]
     Active Substance: REMDESIVIR
     Dosage: 100 MG, QD
     Route: 042
     Dates: start: 20200921, end: 20200924
  18. GABAPENTIN. [Concomitant]
     Active Substance: GABAPENTIN
  19. ACETAMINOPHEN. [Concomitant]
     Active Substance: ACETAMINOPHEN
  20. MELATONIN [Concomitant]
     Active Substance: MELATONIN
  21. PANTOPRAZOLE [Concomitant]
     Active Substance: PANTOPRAZOLE

REACTIONS (1)
  - Death [Fatal]

NARRATIVE: CASE EVENT DATE: 20200930
